FAERS Safety Report 6201931-2 (Version None)
Quarter: 2009Q2

REPORT INFORMATION
  Report Type: 
  Country: None (occurrence: None)
  Receive Date: 20090526
  Receipt Date: 20090522
  Transmission Date: 20091009
  Serious: Yes (Death, Life-Threatening, Hospitalization)
  Sender: FDA-Public Use
  Company Number: PHHY2009JP19945

PATIENT
  Sex: Female

DRUGS (14)
  1. ZOLEDRONIC ACID [Suspect]
     Indication: METASTASES TO BONE
     Dosage: 4 MG, QMO
     Route: 042
     Dates: start: 20080310, end: 20081006
  2. OXYCONTIN [Concomitant]
     Dosage: 120 MG
     Route: 048
     Dates: start: 20080310, end: 20080604
  3. OXYCONTIN [Concomitant]
     Dosage: 20 MG
     Dates: start: 20080605, end: 20081005
  4. MOBIC [Concomitant]
     Dosage: 15 MG
     Route: 048
     Dates: start: 20080310, end: 20081005
  5. TAKEPRON [Concomitant]
     Dosage: 15 MG
     Route: 048
     Dates: start: 20080310, end: 20081005
  6. FEMARA [Concomitant]
     Dosage: 2.5 MG
     Route: 048
     Dates: start: 20080310, end: 20081005
  7. OLMETEC [Concomitant]
     Dosage: 20 MG
     Route: 048
     Dates: start: 20080310, end: 20081005
  8. MAGMITT [Concomitant]
     Dosage: 1320 MG
     Route: 048
     Dates: start: 20080310, end: 20081005
  9. NOVAMIN [Concomitant]
     Dosage: 15 MG
     Route: 048
     Dates: start: 20080310, end: 20080703
  10. GASMOTIN [Concomitant]
     Dosage: 15 MG
     Route: 048
     Dates: start: 20080310, end: 20081005
  11. OXINORM [Concomitant]
     Dosage: 20 MG
     Route: 048
     Dates: start: 20080310, end: 20080703
  12. ADRIACIN [Concomitant]
     Dosage: 65 MG
     Route: 048
     Dates: start: 20080623, end: 20080724
  13. ENDOXAN [Concomitant]
     Dosage: 650 MG
     Dates: start: 20080623, end: 20080724
  14. XELODA [Concomitant]
     Dosage: 1200 MG
     Route: 048
     Dates: start: 20080922, end: 20081017

REACTIONS (4)
  - DEATH [None]
  - LOSS OF CONSCIOUSNESS [None]
  - METASTASES TO MENINGES [None]
  - PNEUMONIA ASPIRATION [None]
